FAERS Safety Report 5209995-X (Version None)
Quarter: 2006Q4

REPORT INFORMATION
  Report Type: 
  Country: None (occurrence: None)
  Receive Date: 20061130
  Receipt Date: 20051228
  Transmission Date: 20070319
  Serious: Yes (Disabling)
  Sender: FDA-Public Use
  Company Number: 2005UW12709

PATIENT
  Age: 63 Year
  Sex: Male
  Weight: 113.39 kg

DRUGS (11)
  1. ENTOCORT [Suspect]
     Indication: COLITIS ULCERATIVE
     Dosage: 9 MG DAILY PO
     Route: 048
     Dates: start: 20031201, end: 20040101
  2. ENTOCORT [Suspect]
     Indication: CROHN'S DISEASE
     Dates: start: 20040201, end: 20040301
  3. PENTASA [Concomitant]
  4. DIFLUCAN [Concomitant]
  5. ASACOL [Concomitant]
  6. DYAZIDE [Concomitant]
  7. ALLEGRA [Concomitant]
  8. LOMOTIL [Concomitant]
  9. PROTONIX [Concomitant]
  10. ASPIRIN [Concomitant]
  11. ACIPHEX [Concomitant]

REACTIONS (26)
  - ABDOMINAL PAIN UPPER [None]
  - ACNE [None]
  - BACK PAIN [None]
  - BLOOD CORTISOL DECREASED [None]
  - BODY HEIGHT DECREASED [None]
  - BONE PAIN [None]
  - CALCIUM METABOLISM DISORDER [None]
  - CONTUSION [None]
  - DECREASED APPETITE [None]
  - DIZZINESS [None]
  - DYSPNOEA [None]
  - EJACULATION DISORDER [None]
  - ERYTHEMA [None]
  - FLUID RETENTION [None]
  - FUNGAL SKIN INFECTION [None]
  - HYPERADRENOCORTICISM [None]
  - NAUSEA [None]
  - PAIN [None]
  - PHOTOPHOBIA [None]
  - RASH [None]
  - SKELETAL INJURY [None]
  - SKIN ATROPHY [None]
  - SLEEP DISORDER [None]
  - VARICOSE VEIN [None]
  - VISION BLURRED [None]
  - WEIGHT DECREASED [None]
